FAERS Safety Report 5621198-3 (Version None)
Quarter: 2008Q1

REPORT INFORMATION
  Report Type: 
  Country: None (occurrence: None)
  Receive Date: 20080114
  Receipt Date: 20061214
  Transmission Date: 20080703
  Serious: Yes (Disabling)
  Sender: FDA-Public Use
  Company Number: A03200607554

PATIENT
  Age: 71 Year
  Sex: Female

DRUGS (4)
  1. PLAVIX [Suspect]
     Indication: TRANSIENT ISCHAEMIC ATTACK
     Dosage: 75 MG QD - ORAL
     Route: 048
     Dates: start: 20041201, end: 20050201
  2. ASPIRIN [Suspect]
     Dosage: 325 MG QD
     Dates: start: 20041201, end: 20050201
  3. SIMVASTATIN [Concomitant]
  4. PARACETAMOL [Concomitant]

REACTIONS (1)
  - HAEMORRHAGE INTRACRANIAL [None]
